FAERS Safety Report 6723344-7 (Version None)
Quarter: 2010Q2

REPORT INFORMATION
  Report Type: 
  Country: None (occurrence: None)
  Receive Date: 20100511
  Receipt Date: 20100429
  Transmission Date: 20101027
  Serious: Yes (Hospitalization)
  Sender: FDA-Public Use
  Company Number: LEO-2010-00355

PATIENT
  Age: 31 Year
  Sex: Female

DRUGS (3)
  1. INNOHEP [Suspect]
     Indication: THROMBOSIS PROPHYLAXIS
     Dosage: 12,250-16,000 IU PER
  2. ACENOCUMAROL (ACENOCOUMAROL) [Concomitant]
  3. ASPIRIN [Concomitant]

REACTIONS (7)
  - ACIDOSIS [None]
  - ANURIA [None]
  - CARDIAC FAILURE CONGESTIVE [None]
  - CARDIAC VALVE REPLACEMENT COMPLICATION [None]
  - CORONARY ARTERY STENOSIS [None]
  - DRUG EXPOSURE DURING PREGNANCY [None]
  - HEART VALVE INCOMPETENCE [None]
